FAERS Safety Report 14481666 (Version 2)
Quarter: 2018Q1

REPORT INFORMATION
  Report Type: Spontaneous
  Country: LY (occurrence: LY)
  Receive Date: 20180202
  Receipt Date: 20180206
  Transmission Date: 20180509
  Serious: Yes (Other)
  Sender: FDA-Public Use
  Company Number: LY-CELLTRION INC.-2018LY017666

PATIENT

DRUGS (2)
  1. REMSIMA [Suspect]
     Active Substance: INFLIXIMAB
     Indication: RHEUMATOID ARTHRITIS
     Dosage: 200 MG
     Route: 042
     Dates: start: 20171231, end: 20171231
  2. REMSIMA [Suspect]
     Active Substance: INFLIXIMAB
     Dosage: 200 MG
     Route: 042
     Dates: start: 20180121, end: 20180121

REACTIONS (9)
  - Dizziness [Unknown]
  - Dyspnoea [Unknown]
  - Underdose [Unknown]
  - Breath sounds abnormal [Unknown]
  - Hypotension [Unknown]
  - Chills [Unknown]
  - Inappropriate schedule of drug administration [Unknown]
  - Cyanosis [Unknown]
  - Tachycardia [Unknown]

NARRATIVE: CASE EVENT DATE: 20180121
